FAERS Safety Report 5254968-4 (Version None)
Quarter: 2007Q1

REPORT INFORMATION
  Report Type: 
  Country: None (occurrence: None)
  Receive Date: 20070305
  Receipt Date: 20070223
  Transmission Date: 20070707
  Serious: Yes (Death)
  Sender: FDA-Public Use
  Company Number: JP-AVENTIS-200710519JP

PATIENT
  Age: 53 Year
  Sex: Female

DRUGS (3)
  1. TAXOTERE [Suspect]
     Indication: BREAST CANCER
     Dosage: DOSE: 75 MG/M2
     Route: 041
     Dates: start: 20060629, end: 20060629
  2. TAXOTERE [Suspect]
     Dosage: DOSE: 75 MG/M2
     Route: 041
  3. HERCEPTIN [Concomitant]
     Indication: BREAST CANCER
     Dates: start: 20060629

REACTIONS (1)
  - GASTROINTESTINAL PERFORATION [None]
